FAERS Safety Report 8846573 (Version 2)
Quarter: 2012Q4

REPORT INFORMATION
  Report Type: 
  Country: US (occurrence: US)
  Receive Date: 20121017
  Receipt Date: 20121119
  Transmission Date: 20130627
  Serious: Yes (Hospitalization)
  Sender: FDA-Public Use
  Company Number: US-TEVA-364617USA

PATIENT
  Age: 80 Year
  Sex: Male

DRUGS (6)
  1. TREANDA [Suspect]
     Route: 042
  2. RITUXAN [Suspect]
  3. ZANTAC [Concomitant]
     Dosage: 300 Milligram Daily;
  4. INSULIN [Concomitant]
     Dosage: 80 IU (International Unit) Daily;
  5. METOPROLOL [Concomitant]
     Dosage: 100 Milligram Daily;
  6. LISINOPRIL [Concomitant]
     Dosage: 20 Milligram Daily;

REACTIONS (4)
  - Neutropenia [Unknown]
  - Pneumonia [Recovered/Resolved]
  - Pyrexia [Recovered/Resolved]
  - Leukopenia [Recovered/Resolved]
